FAERS Safety Report 14895723 (Version 3)
Quarter: 2018Q2

REPORT INFORMATION
  Report Type: Report from Study
  Country: DE (occurrence: DE)
  Receive Date: 20180515
  Receipt Date: 20180605
  Transmission Date: 20180711
  Serious: Yes (Other)
  Sender: FDA-Public Use
  Company Number: PHHY2018DE008616

PATIENT
  Sex: Male
  Weight: 128 kg

DRUGS (21)
  1. COSENTYX [Suspect]
     Active Substance: SECUKINUMAB
     Dosage: 300 MG, PER APPLICATION (PREFILLED SYRINGE)
     Route: 065
     Dates: start: 20170203
  2. COSENTYX [Suspect]
     Active Substance: SECUKINUMAB
     Indication: PSORIATIC ARTHROPATHY
     Dosage: 300 MG, PER APPLICATION (PREFILLED SYRINGE)
     Route: 065
     Dates: start: 20170113
  3. COSENTYX [Suspect]
     Active Substance: SECUKINUMAB
     Dosage: 300 MG, PER APPLICATION (PREFILLED SYRINGE)
     Route: 065
     Dates: start: 20180110
  4. COSENTYX [Suspect]
     Active Substance: SECUKINUMAB
     Dosage: 300 MG, PER APPLICATION (PREFILLED SYRINGE)
     Route: 065
     Dates: start: 20180410
  5. COSENTYX [Suspect]
     Active Substance: SECUKINUMAB
     Dosage: 300 MG, PER APPLICATION (PREFILLED SYRINGE)
     Route: 065
     Dates: start: 20170310
  6. METHOTREXATE. [Concomitant]
     Active Substance: METHOTREXATE
     Indication: PSORIATIC ARTHROPATHY
     Dosage: 15 MG, QW
     Route: 058
     Dates: start: 20180507
  7. COSENTYX [Suspect]
     Active Substance: SECUKINUMAB
     Dosage: 300 MG, PER APPLICATION (PREFILLED SYRINGE)
     Route: 065
     Dates: start: 20170410
  8. COSENTYX [Suspect]
     Active Substance: SECUKINUMAB
     Dosage: 300 MG, PER APPLICATION (PREFILLED SYRINGE)
     Route: 065
     Dates: start: 20170810
  9. COSENTYX [Suspect]
     Active Substance: SECUKINUMAB
     Dosage: 300 MG, PER APPLICATION (PREFILLED SYRINGE)
     Route: 065
     Dates: start: 20170910
  10. COSENTYX [Suspect]
     Active Substance: SECUKINUMAB
     Dosage: 300 MG, PER APPLICATION (PREFILLED SYRINGE)
     Route: 065
     Dates: start: 20171210
  11. COSENTYX [Suspect]
     Active Substance: SECUKINUMAB
     Dosage: 300 MG, PER APPLICATION (PREFILLED SYRINGE)
     Route: 065
     Dates: start: 20180310
  12. COSENTYX [Suspect]
     Active Substance: SECUKINUMAB
     Dosage: 300 MG, PER APPLICATION (PREFILLED SYRINGE)
     Route: 065
     Dates: start: 20170127
  13. COSENTYX [Suspect]
     Active Substance: SECUKINUMAB
     Dosage: 300 MG, PER APPLICATION (PREFILLED SYRINGE)
     Route: 065
     Dates: start: 20170210
  14. COSENTYX [Suspect]
     Active Substance: SECUKINUMAB
     Dosage: 300 MG, PER APPLICATION (PREFILLED SYRINGE)
     Route: 065
     Dates: start: 20170610
  15. COSENTYX [Suspect]
     Active Substance: SECUKINUMAB
     Dosage: 300 MG, PER APPLICATION (PREFILLED SYRINGE)
     Route: 065
     Dates: start: 20171010
  16. COSENTYX [Suspect]
     Active Substance: SECUKINUMAB
     Dosage: 300 MG, PER APPLICATION (PREFILLED SYRINGE)
     Route: 065
     Dates: start: 20171110
  17. COSENTYX [Suspect]
     Active Substance: SECUKINUMAB
     Dosage: 300 MG, PER APPLICATION (PREFILLED SYRINGE)
     Route: 065
     Dates: start: 20170120
  18. COSENTYX [Suspect]
     Active Substance: SECUKINUMAB
     Dosage: 300 MG, PER APPLICATION (PREFILLED SYRINGE)
     Route: 065
     Dates: start: 20170510
  19. COSENTYX [Suspect]
     Active Substance: SECUKINUMAB
     Dosage: 300 MG, PER APPLICATION (PREFILLED SYRINGE)
     Route: 065
     Dates: start: 20170710
  20. COSENTYX [Suspect]
     Active Substance: SECUKINUMAB
     Dosage: 300 MG, PER APPLICATION (PREFILLED SYRINGE)
     Route: 065
     Dates: start: 20180210
  21. FOLIC ACID. [Concomitant]
     Active Substance: FOLIC ACID
     Indication: PSORIATIC ARTHROPATHY
     Dosage: 5 MG, QW
     Route: 048
     Dates: start: 20180507

REACTIONS (2)
  - Diarrhoea haemorrhagic [Recovered/Resolved]
  - Gastrointestinal inflammation [Recovered/Resolved]

NARRATIVE: CASE EVENT DATE: 201803
